FAERS Safety Report 8452895-2 (Version None)
Quarter: 2012Q2

REPORT INFORMATION
  Report Type: 
  Country: None (occurrence: None)
  Receive Date: 20120620
  Receipt Date: 20120613
  Transmission Date: 20120825
  Serious: Yes (Other)
  Sender: FDA-Public Use
  Company Number: NL-BAXTER-2011BH037797

PATIENT
  Sex: Female

DRUGS (5)
  1. KIOVIG [Suspect]
     Route: 042
     Dates: start: 20120516
  2. KIOVIG [Suspect]
     Route: 042
     Dates: start: 20120613
  3. KIOVIG [Suspect]
     Route: 042
     Dates: start: 20111104
  4. KIOVIG [Suspect]
     Route: 042
     Dates: start: 20101124
  5. KIOVIG [Suspect]
     Route: 042
     Dates: start: 20111130

REACTIONS (2)
  - UPPER RESPIRATORY TRACT INFECTION [None]
  - RESPIRATORY TRACT INFECTION [None]
